FAERS Safety Report 9935098 (Version 1)
Quarter: 2014Q1

REPORT INFORMATION
  Report Type: Spontaneous
  Country: US (occurrence: US)
  Receive Date: 20140228
  Receipt Date: 20140228
  Transmission Date: 20141002
  Serious: Yes (Other)
  Sender: FDA-Public Use
  Company Number: US-PFIZER INC-2014056205

PATIENT
  Age: 87 Year
  Sex: Female

DRUGS (2)
  1. XALATAN [Suspect]
     Dosage: 1 GTT, 1X/DAY
     Route: 047
  2. BACLOFEN [Concomitant]
     Indication: MULTIPLE SCLEROSIS
     Dosage: 100 MG, 3X/DAY

REACTIONS (2)
  - Cerebrovascular accident [Unknown]
  - Aphonia [Unknown]
